FAERS Safety Report 4991730-1 (Version None)
Quarter: 2006Q2

REPORT INFORMATION
  Report Type: 
  Country: None (occurrence: None)
  Receive Date: 20060504
  Receipt Date: 20060322
  Transmission Date: 20061013
  Serious: Yes (Hospitalization)
  Sender: FDA-Public Use
  Company Number: DE-GLAXOSMITHKLINE-D0049146A

PATIENT
  Age: 74 Year
  Sex: Male

DRUGS (6)
  1. ARIXTRA [Suspect]
     Indication: THROMBOSIS PROPHYLAXIS
     Route: 058
     Dates: start: 20060201, end: 20060301
  2. MARCUMAR [Concomitant]
     Indication: THROMBOSIS PROPHYLAXIS
     Route: 048
     Dates: end: 20060201
  3. PANTOZOL [Concomitant]
     Dosage: 40MG PER DAY
     Route: 048
  4. ASPIRIN [Concomitant]
     Dosage: 100MG PER DAY
     Route: 048
  5. HYDROCORTISON [Concomitant]
     Dosage: 10MG TWICE PER DAY
     Route: 048
  6. ASTONIN [Concomitant]
     Dosage: .05MG PER DAY
     Route: 048

REACTIONS (6)
  - BLOOD CREATININE INCREASED [None]
  - CEREBRAL ISCHAEMIA [None]
  - DYSPNOEA [None]
  - HEPARIN-INDUCED THROMBOCYTOPENIA [None]
  - PARAESTHESIA [None]
  - PULMONARY EMBOLISM [None]
